FAERS Safety Report 6667597-2 (Version None)
Quarter: 2010Q2

REPORT INFORMATION
  Report Type: 
  Country: None (occurrence: None)
  Receive Date: 20100405
  Receipt Date: 20100329
  Transmission Date: 20101027
  Serious: Yes (Death)
  Sender: FDA-Public Use
  Company Number: US-ELI_LILLY_AND_COMPANY-US201003007835

PATIENT
  Age: 25 Year
  Sex: Male

DRUGS (2)
  1. ZYPREXA [Suspect]
     Dosage: 1 D/F, UNK
     Dates: end: 20091110
  2. DEXTROAMPHETAMINE [Concomitant]
     Dosage: 1 D/F, UNK
     Dates: start: 20091101

REACTIONS (4)
  - BLOOD POTASSIUM INCREASED [None]
  - COMPLETED SUICIDE [None]
  - DISTURBANCE IN ATTENTION [None]
  - DRUG WITHDRAWAL SYNDROME [None]
